FAERS Safety Report 8061257-1 (Version None)
Quarter: 2012Q1

REPORT INFORMATION
  Report Type: 
  Country: None (occurrence: None)
  Receive Date: 20120120
  Receipt Date: 20110803
  Transmission Date: 20120608
  Serious: No
  Sender: FDA-Public Use
  Company Number: US-ALLERGAN-1110486US

PATIENT
  Age: 61 Year
  Sex: Female

DRUGS (2)
  1. RESTASIS [Suspect]
     Indication: DRY EYE
     Dosage: 1 GTT, BID
     Route: 047
     Dates: start: 20090709, end: 20100501
  2. OTC PRESERVATIVE FREE TEARS [Concomitant]

REACTIONS (2)
  - DERMATITIS ALLERGIC [None]
  - ECZEMA EYELIDS [None]
